FAERS Safety Report 7235131-4 (Version None)
Quarter: 2011Q1

REPORT INFORMATION
  Report Type: 
  Country: None (occurrence: None)
  Receive Date: 20110120
  Receipt Date: 20110112
  Transmission Date: 20110831
  Serious: Yes (Hospitalization)
  Sender: FDA-Public Use
  Company Number: US-SANOFI-AVENTIS-2011SA002628

PATIENT
  Sex: Male

DRUGS (10)
  1. NAMENDA [Concomitant]
  2. DIURETICS [Concomitant]
  3. MULTAQ [Suspect]
     Indication: ATRIAL FIBRILLATION
     Route: 048
     Dates: start: 20101201, end: 20110101
  4. LEVOTHYROXINE [Concomitant]
  5. METOPROLOL [Concomitant]
  6. POTASSIUM [Concomitant]
  7. COUMADIN [Concomitant]
  8. LORAZEPAM [Concomitant]
  9. ZOCOR [Suspect]
     Route: 065
     Dates: start: 20101201, end: 20110101
  10. TRIAZOLAM [Concomitant]

REACTIONS (7)
  - DRUG INTERACTION [None]
  - ASPARTATE AMINOTRANSFERASE INCREASED [None]
  - RHABDOMYOLYSIS [None]
  - BLOOD CREATINE PHOSPHOKINASE INCREASED [None]
  - MYOPATHY [None]
  - ALANINE AMINOTRANSFERASE INCREASED [None]
  - BLOOD CREATININE INCREASED [None]
